FAERS Safety Report 10099635 (Version 1)
Quarter: 2014Q2

REPORT INFORMATION
  Report Type: Spontaneous
  Country: US (occurrence: None)
  Receive Date: 20140414
  Receipt Date: 20140414
  Transmission Date: 20141212
  Serious: Yes (Other)
  Sender: FDA-Public Use
  Company Number: 083424

PATIENT
  Sex: Female

DRUGS (11)
  1. METHYLPHENIDATE [Suspect]
     Dosage: UNKNOWN DOSE
     Dates: end: 2013
  2. XYREM [Suspect]
     Indication: NARCOLEPSY
     Route: 048
     Dates: start: 20130128, end: 2013
  3. XYREM [Suspect]
     Indication: CATAPLEXY
     Route: 048
     Dates: start: 20130128, end: 2013
  4. FLUTICASONE PROPIONATE W/SALMETEROL [Concomitant]
  5. ALBUTEROL /00139501/ [Concomitant]
  6. DULOXETINE HYDROCHLORIDE [Concomitant]
  7. ZOLPIDEM TARTRATE [Concomitant]
  8. PRAMIPEXOLE DIHYDROCHLORIDE [Concomitant]
  9. PROTRIPTYLINE [Suspect]
  10. CLONAZEPAM [Suspect]
  11. HYDROCHLOROTHIAZIDE [Concomitant]

REACTIONS (7)
  - Confusional state [None]
  - Hallucination [None]
  - Anxiety [None]
  - Migraine [None]
  - Hypertension [None]
  - Tachycardia [None]
  - Somnolence [None]
